FAERS Safety Report 9276906 (Version 1)
Quarter: 2013Q2

REPORT INFORMATION
  Report Type: Spontaneous
  Country: FR (occurrence: FR)
  Receive Date: 20130507
  Receipt Date: 20130507
  Transmission Date: 20140414
  Serious: Yes (Hospitalization, Disabling)
  Sender: FDA-Public Use
  Company Number: FR-GILEAD-2013-0074788

PATIENT
  Age: 49 Year
  Sex: Male

DRUGS (10)
  1. TRUVADA [Suspect]
     Indication: HIV INFECTION
     Dosage: UNK
     Dates: start: 20110115
  2. NORVIR [Suspect]
     Indication: HIV INFECTION
     Dosage: UNK
     Dates: start: 20071016
  3. REYATAZ [Suspect]
     Indication: HIV INFECTION
     Dosage: UNK
     Dates: start: 20110115
  4. SOLUPRED /00016201/ [Suspect]
     Indication: TRACHEITIS
     Dosage: 80 MG, UNK
     Route: 048
     Dates: start: 201105, end: 201105
  5. PEGASYS [Suspect]
     Indication: HIV INFECTION
     Dosage: UNK
     Dates: start: 20090627, end: 20120128
  6. AUGMENTIN                          /00756801/ [Concomitant]
     Indication: TRACHEITIS
     Dosage: UNK
     Dates: start: 201105
  7. EFFERALGAN                         /00020001/ [Concomitant]
     Indication: TRACHEITIS
     Dosage: UNK
     Dates: start: 201105
  8. LEXOMIL [Concomitant]
     Dosage: UNK
     Dates: start: 20110115
  9. DOLIPRANE [Concomitant]
     Dosage: UNK
     Dates: start: 20110115
  10. ZELITREX [Concomitant]
     Dosage: UNK
     Dates: start: 20110115

REACTIONS (1)
  - Osteonecrosis [Not Recovered/Not Resolved]
